FAERS Safety Report 9722732 (Version 4)
Quarter: 2014Q1

REPORT INFORMATION
  Report Type: Spontaneous
  Country: US (occurrence: US)
  Receive Date: 20131202
  Receipt Date: 20140304
  Transmission Date: 20141002
  Serious: No
  Sender: FDA-Public Use
  Company Number: US-PFIZER INC-2013340978

PATIENT
  Age: 85 Year
  Sex: Female
  Weight: 85.71 kg

DRUGS (11)
  1. XELJANZ [Suspect]
     Indication: RHEUMATOID ARTHRITIS
     Dosage: 5 MG, 2X/DAY
     Route: 048
     Dates: start: 201308
  2. XELJANZ [Suspect]
     Dosage: 5 MG, 2X/DAY
     Route: 048
     Dates: start: 20131002
  3. XELJANZ [Suspect]
     Dosage: 5 MG, 2X/DAY
     Route: 048
     Dates: start: 20131003
  4. XELJANZ [Suspect]
     Dosage: 5 MG, 2X/DAY
     Route: 048
     Dates: start: 20131104
  5. PREDNISONE [Concomitant]
     Indication: RHEUMATOID ARTHRITIS
     Dosage: UNK
  6. TRAMADOL [Concomitant]
     Indication: PAIN
     Dosage: UNK
  7. IBUPROFEN [Concomitant]
     Indication: INFLAMMATION
     Dosage: UNK
  8. VERAPAMIL [Concomitant]
     Dosage: UNK
  9. CITRACAL [Concomitant]
     Dosage: UNK
  10. VITAMIN D [Concomitant]
     Dosage: UNK
  11. FISH OIL [Concomitant]
     Dosage: UNK

REACTIONS (1)
  - Fatigue [Unknown]
